FAERS Safety Report 17055254 (Version 2)
Quarter: 2019Q4

REPORT INFORMATION
  Report Type: Spontaneous
  Country: JP (occurrence: JP)
  Receive Date: 20191120
  Receipt Date: 20191204
  Transmission Date: 20200122
  Serious: Yes (Other)
  Sender: FDA-Public Use
  Company Number: JP-PFIZER INC-2019497328

PATIENT
  Age: 7 Decade
  Sex: Female

DRUGS (10)
  1. SOLANAX [Suspect]
     Active Substance: ALPRAZOLAM
  2. PZC [PERPHENAZINE HYDROCHLORIDE] [Suspect]
     Active Substance: PERPHENAZINE HYDROCHLORIDE
     Dosage: 2 MG, 1X/DAY
     Route: 048
  3. EBIOS [Suspect]
     Active Substance: YEAST
     Route: 048
  4. MUCOSTA [Concomitant]
     Active Substance: REBAMIPIDE
     Route: 048
  5. DOGMATYL [Concomitant]
     Active Substance: SULPIRIDE
     Route: 048
  6. DEPAS [ETIZOLAM] [Suspect]
     Active Substance: ETIZOLAM
     Indication: ANXIETY DISORDER
     Dosage: 0.5 MG, UNK
     Route: 048
  7. WYPAX [Concomitant]
     Active Substance: LORAZEPAM
  8. DEPAS [ETIZOLAM] [Suspect]
     Active Substance: ETIZOLAM
     Indication: DISCOMFORT
     Dosage: 0.25 MG, UNK
     Route: 048
  9. CLOTIAZEPAM [Suspect]
     Active Substance: CLOTIAZEPAM
  10. CONSTAN [ALPRAZOLAM] [Concomitant]
     Active Substance: ALPRAZOLAM

REACTIONS (35)
  - Scoliosis [Unknown]
  - Dysstasia [Unknown]
  - Musculoskeletal discomfort [Unknown]
  - Restlessness [Unknown]
  - Hypoaesthesia [Unknown]
  - Therapeutic response unexpected [Unknown]
  - Somnolence [Unknown]
  - Allergy to metals [Unknown]
  - Hypotension [Unknown]
  - Urticaria [Unknown]
  - Increased appetite [Unknown]
  - Limb discomfort [Unknown]
  - Neck deformity [Unknown]
  - Rash [Unknown]
  - Malaise [Unknown]
  - Hypoaesthesia [Unknown]
  - Abnormal behaviour [Unknown]
  - Weight decreased [Unknown]
  - Intentional product misuse [Unknown]
  - Withdrawal syndrome [Unknown]
  - Dependence [Unknown]
  - Loss of consciousness [Unknown]
  - Back disorder [Unknown]
  - Temperature regulation disorder [Unknown]
  - Abdominal distension [Unknown]
  - Blood pressure increased [Unknown]
  - Hyperhidrosis [Unknown]
  - Dyspnoea [Unknown]
  - Drug ineffective [Unknown]
  - Feeling abnormal [Unknown]
  - Chronic gastritis [Unknown]
  - Autonomic nervous system imbalance [Unknown]
  - Pruritus [Unknown]
  - Blood creatine phosphokinase increased [Unknown]
  - Liver function test increased [Unknown]

NARRATIVE: CASE EVENT DATE: 20190911
